FAERS Safety Report 7452256-9 (Version None)
Quarter: 2011Q2

REPORT INFORMATION
  Report Type: 
  Country: None (occurrence: None)
  Receive Date: 20110502
  Receipt Date: 20110422
  Transmission Date: 20111010
  Serious: Yes (Hospitalization)
  Sender: FDA-Public Use
  Company Number: FR-BAXTER-2011BH013011

PATIENT
  Age: 8 Year
  Sex: Male

DRUGS (5)
  1. AMSACRINE [Suspect]
     Indication: ACUTE BIPHENOTYPIC LEUKAEMIA
     Route: 042
     Dates: start: 20110107, end: 20110110
  2. UROMITEXAN BAXTER [Suspect]
     Indication: ACUTE BIPHENOTYPIC LEUKAEMIA
     Route: 042
     Dates: start: 20110115, end: 20110116
  3. CYCLOPHOSPHAMIDE [Suspect]
     Indication: ACUTE BIPHENOTYPIC LEUKAEMIA
     Route: 042
     Dates: start: 20110115, end: 20110115
  4. ARACYTINE [Suspect]
     Indication: ACUTE BIPHENOTYPIC LEUKAEMIA
     Route: 042
     Dates: start: 20110107, end: 20110110
  5. FLUDARABINE [Suspect]
     Indication: ACUTE BIPHENOTYPIC LEUKAEMIA
     Route: 042
     Dates: start: 20110107, end: 20110112

REACTIONS (1)
  - CYSTITIS HAEMORRHAGIC [None]
